FAERS Safety Report 4686599-9 (Version None)
Quarter: 2005Q2

REPORT INFORMATION
  Report Type: 
  Country: None (occurrence: None)
  Receive Date: 20050609
  Receipt Date: 20050506
  Transmission Date: 20051028
  Serious: Yes (Other)
  Sender: FDA-Public Use
  Company Number: US-BRISTOL-MYERS SQUIBB COMPANY-12959482

PATIENT
  Age: 58 Year
  Sex: Female
  Weight: 73 kg

DRUGS (15)
  1. PARAPLATIN [Suspect]
     Indication: OVARIAN CANCER METASTATIC
     Route: 042
  2. TAXOL [Concomitant]
     Indication: OVARIAN CANCER METASTATIC
  3. BENADRYL [Concomitant]
     Indication: PREMEDICATION
     Route: 042
  4. DECADRON [Concomitant]
     Indication: PREMEDICATION
     Route: 042
  5. CIMETIDINE [Concomitant]
     Indication: PREMEDICATION
     Route: 042
  6. LIPITOR [Concomitant]
  7. BACLOFEN [Concomitant]
  8. METHADONE HCL [Concomitant]
  9. ZETIA [Concomitant]
  10. FLEXERIL [Concomitant]
  11. VALIUM [Concomitant]
  12. HYDROCHLOROTHIAZIDE [Concomitant]
     Dosage: DOSAGE = 37.5/25 MILLIGRAMS
  13. ZOLOFT [Concomitant]
  14. MAG-OX [Concomitant]
  15. ALOXI [Concomitant]
     Indication: PREMEDICATION
     Route: 042

REACTIONS (2)
  - FLUSHING [None]
  - PRURITUS [None]
